FAERS Safety Report 6329508-9 (Version None)
Quarter: 2009Q3

REPORT INFORMATION
  Report Type: 
  Country: None (occurrence: None)
  Receive Date: 20090818
  Receipt Date: 20090501
  Transmission Date: 20100115
  Serious: No
  Sender: FDA-Public Use
  Company Number: WAES 0903USA03667

PATIENT
  Age: 60 Year
  Sex: Female
  Weight: 74.8435 kg

DRUGS (10)
  1. JANUVIA [Suspect]
     Indication: DIABETES MELLITUS
     Dosage: 100 MG/DAILY/PO
     Route: 048
     Dates: start: 20080813
  2. ALLEGRA [Concomitant]
  3. PREVACID [Concomitant]
  4. SYNTHROID [Concomitant]
  5. XANAX [Concomitant]
  6. ATENOLOL [Concomitant]
  7. GLIMEPIRIDE [Concomitant]
  8. GLYBURIDE [Concomitant]
  9. METFORMIN HCL [Concomitant]
  10. PRAVASTATIN SODIUM [Concomitant]

REACTIONS (3)
  - MIDDLE INSOMNIA [None]
  - PRURITUS [None]
  - RASH [None]
